FAERS Safety Report 7900527-1 (Version None)
Quarter: 2011Q4

REPORT INFORMATION
  Report Type: 
  Country: None (occurrence: None)
  Receive Date: 20111108
  Receipt Date: 20111031
  Transmission Date: 20120403
  Serious: Yes (Disabling)
  Sender: FDA-Public Use
  Company Number: CN-BRISTOL-MYERS SQUIBB COMPANY-16051351

PATIENT
  Age: 6 Decade
  Sex: Male

DRUGS (1)
  1. ERBITUX [Suspect]
     Indication: GASTROINTESTINAL CARCINOMA
     Dosage: 85.7143MG (600MG ONCE) ON JUL11-JUL11 57.1429MG (400MG, 1 IN 1 WK) ON JUL11-AUG11(1 MONTH).
     Route: 041
     Dates: start: 20110701, end: 20110801

REACTIONS (1)
  - METASTASES TO SPINE [None]
